FAERS Safety Report 12369424 (Version 1)
Quarter: 2016Q2

REPORT INFORMATION
  Report Type: Spontaneous
  Country: None (occurrence: None)
  Receive Date: 20160513
  Receipt Date: 20160513
  Transmission Date: 20160815
  Serious: Yes (Other)
  Sender: FDA-Public Use
  Company Number: None

PATIENT
  Age: 26 Year
  Sex: Female
  Weight: 63.5 kg

DRUGS (1)
  1. ACNOMEL [Suspect]
     Active Substance: RESORCINOL\SALICYLIC ACID\SULFUR
     Indication: ACNE
     Dates: start: 20160328, end: 20160510

REACTIONS (5)
  - Application site pain [None]
  - Application site pruritus [None]
  - Application site discharge [None]
  - Application site rash [None]
  - Application site erythema [None]

NARRATIVE: CASE EVENT DATE: 20160511
